FAERS Safety Report 8774345 (Version 3)
Quarter: 2013Q3

REPORT INFORMATION
  Report Type: Spontaneous
  Country: US (occurrence: US)
  Receive Date: 20120907
  Receipt Date: 20130703
  Transmission Date: 20140515
  Serious: Yes (Other)
  Sender: FDA-Public Use
  Company Number: US-UCBSA-065028

PATIENT
  Age: 42 Year
  Sex: Male
  Weight: 68.1 kg

DRUGS (2)
  1. CIMZIA [Suspect]
     Indication: CROHN^S DISEASE
  2. CIMZIA [Suspect]
     Indication: CROHN^S DISEASE

REACTIONS (1)
  - Latent tuberculosis [Unknown]
